FAERS Safety Report 22253554 (Version 1)
Quarter: 2023Q2

REPORT INFORMATION
  Report Type: Other
  Country: IN (occurrence: None)
  Receive Date: 20230426
  Receipt Date: 20230426
  Transmission Date: 20230721
  Serious: Yes (Hospitalization, Other)
  Sender: FDA-Public Use
  Company Number: IN-ROCHE-3336309

PATIENT
  Age: 71 Year
  Sex: Female

DRUGS (1)
  1. PHESGO [Suspect]
     Active Substance: HYALURONIDASE-ZZXF\PERTUZUMAB\TRASTUZUMAB
     Indication: Breast cancer
     Route: 058
     Dates: start: 20221223

REACTIONS (10)
  - Diarrhoea [Unknown]
  - Hip fracture [Unknown]
  - Hypokalaemia [Unknown]
  - Blood sodium decreased [Unknown]
  - Balance disorder [Unknown]
  - Fall [Unknown]
  - Blood potassium decreased [Unknown]
  - Blood magnesium decreased [Unknown]
  - Blood phosphorus decreased [Unknown]
  - Haemoglobin decreased [Unknown]
